FAERS Safety Report 5847648-5 (Version None)
Quarter: 2008Q3

REPORT INFORMATION
  Report Type: 
  Country: None (occurrence: None)
  Receive Date: 20080818
  Receipt Date: 20080811
  Transmission Date: 20090109
  Serious: Yes (Other)
  Sender: FDA-Public Use
  Company Number: CA-RANBAXY-2008US-17159

PATIENT

DRUGS (3)
  1. MINOCYCLINE HYDROCHLORIDE [Suspect]
     Indication: MULTIPLE SCLEROSIS
     Dosage: 100 MG, BID
     Route: 048
  2. CONTRACEPTIVES [Concomitant]
     Indication: CONTRACEPTION
     Route: 048
  3. CONTRACEPTIVES NOS [Concomitant]
     Indication: DRUG USE FOR UNKNOWN INDICATION

REACTIONS (2)
  - CAROTID ARTERY DISSECTION [None]
  - ISCHAEMIC CEREBRAL INFARCTION [None]
